FAERS Safety Report 5519846-1 (Version None)
Quarter: 2007Q4

REPORT INFORMATION
  Report Type: 
  Country: None (occurrence: None)
  Receive Date: 20071116
  Receipt Date: 20070917
  Transmission Date: 20080405
  Serious: No
  Sender: FDA-Public Use
  Company Number: A0682430A

PATIENT
  Sex: Female

DRUGS (3)
  1. COREG CR [Suspect]
     Indication: HYPERTENSION
     Dosage: 20MG PER DAY
     Route: 048
     Dates: start: 20070801
  2. ANTIDEPRESSANTS [Concomitant]
  3. ANTIHYPERTENSIVE [Concomitant]

REACTIONS (1)
  - HEADACHE [None]
